FAERS Safety Report 12119364 (Version 1)
Quarter: 2016Q1

REPORT INFORMATION
  Report Type: Spontaneous
  Country: US (occurrence: None)
  Receive Date: 20160225
  Receipt Date: 20160225
  Transmission Date: 20160526
  Serious: Yes (Other)
  Sender: FDA-Public Use
  Company Number: None

PATIENT
  Age: 8 Year
  Sex: Male
  Weight: 29.12 kg

DRUGS (2)
  1. ARIPIPRAZOLE. [Suspect]
     Active Substance: ARIPIPRAZOLE
     Indication: OBSESSIVE-COMPULSIVE DISORDER
     Dosage: ABILIFY 10MG  1/2 TABLET TWICE DAIL ORAL
     Route: 048
     Dates: start: 201508
  2. ARIPIPRAZOLE. [Suspect]
     Active Substance: ARIPIPRAZOLE
     Indication: SEVERE MYOCLONIC EPILEPSY OF INFANCY
     Dosage: ABILIFY 10MG  1/2 TABLET TWICE DAIL ORAL
     Route: 048
     Dates: start: 201508

REACTIONS (3)
  - Treatment failure [None]
  - Drug intolerance [None]
  - Product substitution issue [None]
